FAERS Safety Report 5042835-0 (Version None)
Quarter: 2006Q3

REPORT INFORMATION
  Report Type: 
  Country: None (occurrence: None)
  Receive Date: 20060705
  Receipt Date: 20060623
  Transmission Date: 20061208
  Serious: Yes (Disabling)
  Sender: FDA-Public Use
  Company Number: CA-GLAXOSMITHKLINE-A0610405A

PATIENT
  Age: 67 Year
  Sex: Female

DRUGS (4)
  1. ARIXTRA [Suspect]
     Indication: ANTICOAGULANT THERAPY
     Dosage: 2.5MG PER DAY
     Route: 058
     Dates: start: 20060607, end: 20060620
  2. FRAXIPARINE [Suspect]
     Dates: start: 20060621
  3. SYNTHROID [Concomitant]
  4. ARTHROTEC [Concomitant]
     Dosage: 75MG TWICE PER DAY

REACTIONS (10)
  - ABDOMINAL PAIN UPPER [None]
  - ANGIONEUROTIC OEDEMA [None]
  - BACK PAIN [None]
  - CHILLS [None]
  - COUGH [None]
  - EPIDEMIC PLEURODYNIA [None]
  - ORAL PAIN [None]
  - PAIN IN EXTREMITY [None]
  - PHARYNGOLARYNGEAL PAIN [None]
  - PYREXIA [None]
